FAERS Safety Report 19561351 (Version 3)
Quarter: 2021Q3

REPORT INFORMATION
  Report Type: Report from Study
  Country: US (occurrence: US)
  Receive Date: 20210716
  Receipt Date: 20210809
  Transmission Date: 20211014
  Serious: Yes (Hospitalization)
  Sender: FDA-Public Use
  Company Number: US-INSMED, INC.-2021-08586-US

PATIENT
  Age: 76 Year
  Sex: Female

DRUGS (2)
  1. ARIKAYCE [Suspect]
     Active Substance: AMIKACIN
     Indication: MYCOBACTERIUM ABSCESSUS INFECTION
  2. ARIKAYCE [Suspect]
     Active Substance: AMIKACIN
     Indication: MYCOBACTERIUM AVIUM COMPLEX INFECTION
     Dosage: 590 MILLIGRAM, QD
     Route: 055
     Dates: start: 20210524, end: 2021

REACTIONS (12)
  - Peptic ulcer [Unknown]
  - Product dose omission issue [Unknown]
  - Eating disorder [Unknown]
  - Dry mouth [Unknown]
  - Dysgeusia [Unknown]
  - Taste disorder [Unknown]
  - Weight decreased [Unknown]
  - Dizziness [Recovered/Resolved]
  - Dyspnoea [Unknown]
  - Nausea [Unknown]
  - Cough [Not Recovered/Not Resolved]
  - Product supply issue [Unknown]

NARRATIVE: CASE EVENT DATE: 2021
